FAERS Safety Report 25375186 (Version 1)
Quarter: 2025Q2

REPORT INFORMATION
  Report Type: Spontaneous
  Country: IT (occurrence: IT)
  Receive Date: 20250529
  Receipt Date: 20250529
  Transmission Date: 20250716
  Serious: Yes (Life-Threatening, Hospitalization, Other)
  Sender: MERCK SHARP & DOHME LLC
  Company Number: None

PATIENT
  Age: 65 Year
  Sex: Male

DRUGS (1)
  1. KEYTRUDA [Suspect]
     Active Substance: PEMBROLIZUMAB
     Indication: Lung adenocarcinoma stage IV
     Dosage: 200 MG EVERY 21 DAYS, PLANNED TOGETHER WITH CARBOPLATIN-ALIMTA
     Route: 042
     Dates: start: 20250416, end: 20250416

REACTIONS (1)
  - Tumour hyperprogression [Not Recovered/Not Resolved]

NARRATIVE: CASE EVENT DATE: 20250505
